FAERS Safety Report 7012026-2 (Version None)
Quarter: 2010Q3

REPORT INFORMATION
  Report Type: 
  Country: None (occurrence: None)
  Receive Date: 20100924
  Receipt Date: 20100916
  Transmission Date: 20110219
  Serious: Yes (Hospitalization)
  Sender: FDA-Public Use
  Company Number: US-US-EMD SERONO, INC.-237248K09USA

PATIENT
  Sex: Male

DRUGS (1)
  1. REBIF [Suspect]
     Route: 058
     Dates: start: 20090504, end: 20090701

REACTIONS (1)
  - CONVULSION [None]
